FAERS Safety Report 16547896 (Version 2)
Quarter: 2019Q3

REPORT INFORMATION
  Report Type: Spontaneous
  Country: US (occurrence: US)
  Receive Date: 20190709
  Receipt Date: 20190729
  Transmission Date: 20191004
  Serious: No
  Sender: FDA-Public Use
  Company Number: US-SA-2019SA180727

PATIENT
  Age: 45 Year
  Sex: Female

DRUGS (1)
  1. LANTUS SOLOSTAR [Suspect]
     Active Substance: INSULIN GLARGINE
     Dosage: 15-16 UNITS BID
     Route: 065

REACTIONS (3)
  - Product quality issue [Unknown]
  - Inappropriate schedule of product administration [Unknown]
  - Blood glucose abnormal [Unknown]
